FAERS Safety Report 8142360-4 (Version None)
Quarter: 2012Q1

REPORT INFORMATION
  Report Type: 
  Country: None (occurrence: None)
  Receive Date: 20120216
  Receipt Date: 20120214
  Transmission Date: 20120608
  Serious: Yes (Death)
  Sender: FDA-Public Use
  Company Number: PHHY2012CA007458

PATIENT
  Sex: Female

DRUGS (11)
  1. HYZAAR [Concomitant]
     Dosage: 1 DF, 100/2.5
  2. CELEXA [Concomitant]
     Dosage: 10 G, DAILY
  3. COUMADIN [Concomitant]
  4. LIPITOR [Concomitant]
     Dosage: 10 MG, DAILY
  5. ZOLEDRONOC ACID [Suspect]
     Dosage: 5 MG, ANNUALLY
     Route: 042
     Dates: start: 20110426
  6. ELAVIL [Concomitant]
     Dosage: 10 MG, UNK
  7. ZOLEDRONOC ACID [Suspect]
     Indication: OSTEOPOROSIS POSTMENOPAUSAL
     Dosage: 5 MG, ANNUALLY
     Route: 042
     Dates: start: 20090319
  8. COLAC [Concomitant]
  9. ZOLEDRONOC ACID [Suspect]
     Dosage: 5 MG, ANNUALLY
     Route: 042
     Dates: start: 20100318
  10. PULMICORT-100 [Concomitant]
  11. SYNTHROID [Concomitant]
     Dosage: 1 DF, 0.10 DAILY

REACTIONS (1)
  - DEATH [None]
